FAERS Safety Report 20752476 (Version 1)
Quarter: 2022Q2

REPORT INFORMATION
  Report Type: Spontaneous
  Country: US (occurrence: None)
  Receive Date: 20220426
  Receipt Date: 20220426
  Transmission Date: 20220721
  Serious: No
  Sender: FDA-Public Use
  Company Number: US-ROCHE-2827450

PATIENT
  Age: 81 Year
  Sex: Male

DRUGS (14)
  1. ESBRIET [Suspect]
     Active Substance: PIRFENIDONE
     Indication: Idiopathic pulmonary fibrosis
     Route: 048
  2. ESBRIET [Suspect]
     Active Substance: PIRFENIDONE
     Dosage: THREE 267 MG TABLET AFTER EACH MEAL
     Route: 048
     Dates: start: 20210319, end: 20210419
  3. LOPERAMIDE HYDROCHLORIDE [Concomitant]
     Active Substance: LOPERAMIDE HYDROCHLORIDE
  4. ASPIRIN [Concomitant]
     Active Substance: ASPIRIN
  5. ATORVASTATIN CALCIUM [Concomitant]
     Active Substance: ATORVASTATIN CALCIUM
  6. BISOPROLOL FUMARATE [Concomitant]
     Active Substance: BISOPROLOL FUMARATE
  7. CALCIUM [Concomitant]
     Active Substance: CALCIUM
  8. COENZYME Q10 [Concomitant]
     Active Substance: DIETARY SUPPLEMENT\UBIDECARENONE
  9. FINASTERIDE [Concomitant]
     Active Substance: FINASTERIDE
  10. IRBESARTAN [Concomitant]
     Active Substance: IRBESARTAN
  11. MAGNESIUM [Concomitant]
     Active Substance: MAGNESIUM
  12. TAMSULOSIN HYDROCHLORIDE [Concomitant]
     Active Substance: TAMSULOSIN HYDROCHLORIDE
  13. ERGOCALCIFEROL [Concomitant]
     Active Substance: ERGOCALCIFEROL
  14. VITAMIN B12 [Concomitant]
     Active Substance: CYANOCOBALAMIN

REACTIONS (2)
  - Rash [Unknown]
  - Rash [Not Recovered/Not Resolved]

NARRATIVE: CASE EVENT DATE: 20210406
